FAERS Safety Report 4542445-5 (Version None)
Quarter: 2004Q4

REPORT INFORMATION
  Report Type: 
  Country: None (occurrence: None)
  Receive Date: 20041229
  Receipt Date: 20041213
  Transmission Date: 20050328
  Serious: Yes (Other)
  Sender: FDA-Public Use
  Company Number: 2004AP000924

PATIENT
  Age: 15 Year
  Sex: Male

DRUGS (8)
  1. CARBAMAZEPINE [Suspect]
     Indication: BIPOLAR DISORDER
  2. LITHIUM CARBONATE [Concomitant]
  3. DIVALPROEX SODIUM [Concomitant]
  4. TOPIRAMATE [Concomitant]
  5. CHLORPROMAZINE [Concomitant]
  6. OXCARBAZEPINE [Concomitant]
  7. HALOPERIDOL [Concomitant]
  8. ZIPRASIDONE [Concomitant]

REACTIONS (1)
  - MANIA [None]
